FAERS Safety Report 23031667 (Version 1)
Quarter: 2023Q4

REPORT INFORMATION
  Report Type: Report from Study
  Country: AU (occurrence: None)
  Receive Date: 20231005
  Receipt Date: 20231005
  Transmission Date: 20240109
  Serious: Yes (Hospitalization)
  Sender: FDA-Public Use
  Company Number: AU-ROCHE-3431501

PATIENT
  Age: 75 Year
  Sex: Male

DRUGS (33)
  1. OBINUTUZUMAB [Suspect]
     Active Substance: OBINUTUZUMAB
     Indication: Chronic lymphocytic leukaemia
     Route: 042
     Dates: start: 20160830, end: 20160830
  2. OBINUTUZUMAB [Suspect]
     Active Substance: OBINUTUZUMAB
     Route: 042
     Dates: start: 20170117, end: 20170117
  3. AMLODIPINE [Concomitant]
     Active Substance: AMLODIPINE BESYLATE
  4. PERINDOPRIL [Concomitant]
     Active Substance: PERINDOPRIL
  5. DEXAMETHASONE [Concomitant]
     Active Substance: DEXAMETHASONE
  6. IODINE M [Concomitant]
  7. TEMAZEPAM [Concomitant]
     Active Substance: TEMAZEPAM
  8. ALLOPURINOL [Concomitant]
     Active Substance: ALLOPURINOL
  9. UBIQUINOL [Concomitant]
     Active Substance: UBIQUINOL
  10. LORAZEPAM [Concomitant]
     Active Substance: LORAZEPAM
  11. ACETAMINOPHEN [Concomitant]
     Active Substance: ACETAMINOPHEN
  12. LORATADINE [Concomitant]
     Active Substance: LORATADINE
  13. VALACYCLOVIR HYDROCHLORIDE [Concomitant]
     Active Substance: VALACYCLOVIR HYDROCHLORIDE
  14. ENOXAPARIN SODIUM [Concomitant]
     Active Substance: ENOXAPARIN SODIUM
  15. CEFAZOLIN [Concomitant]
     Active Substance: CEFAZOLIN
  16. OXYCODONE [Concomitant]
     Active Substance: OXYCODONE
  17. TRICORTONE [Concomitant]
  18. PREGABALIN [Concomitant]
     Active Substance: PREGABALIN
  19. FENTANYL [Concomitant]
     Active Substance: FENTANYL
  20. FAMCICLOVIR [Concomitant]
     Active Substance: FAMCICLOVIR
  21. BACTRIM [Concomitant]
     Active Substance: SULFAMETHOXAZOLE\TRIMETHOPRIM
  22. BUPRENORPHINE [Concomitant]
     Active Substance: BUPRENORPHINE
  23. CALCIUM CHLORIDE\POTASSIUM CHLORIDE\SODIUM LACTATE [Concomitant]
     Active Substance: CALCIUM CHLORIDE\POTASSIUM CHLORIDE\SODIUM LACTATE
  24. PENICILLIN G [Concomitant]
     Active Substance: PENICILLIN G
  25. MELATONIN [Concomitant]
     Active Substance: MELATONIN
  26. DOXYCYCLINE [Concomitant]
     Active Substance: DOXYCYCLINE
  27. THIAMINE [Concomitant]
     Active Substance: THIAMINE
  28. NORSPAN [Concomitant]
     Active Substance: BUPRENORPHINE
  29. MIDAZOLAM [Concomitant]
     Active Substance: MIDAZOLAM
  30. ONDANSETRON [Concomitant]
     Active Substance: ONDANSETRON
  31. BUPRENORPHINE HYDROCHLORIDE [Concomitant]
     Active Substance: BUPRENORPHINE HYDROCHLORIDE
  32. LIDOCAINE HYDROCHLORIDE [Concomitant]
     Active Substance: LIDOCAINE HYDROCHLORIDE
  33. PROPOFOL [Concomitant]
     Active Substance: PROPOFOL

REACTIONS (1)
  - Inguinal hernia [Recovered/Resolved]

NARRATIVE: CASE EVENT DATE: 20230417
